FAERS Safety Report 6886567-2 (Version None)
Quarter: 2010Q3

REPORT INFORMATION
  Report Type: 
  Country: None (occurrence: None)
  Receive Date: 20100730
  Receipt Date: 20100720
  Transmission Date: 20110219
  Serious: No
  Sender: FDA-Public Use
  Company Number: US-BIOGENIDEC-2010BI020371

PATIENT
  Sex: Female

DRUGS (2)
  1. TYSABRI [Suspect]
     Indication: MULTIPLE SCLEROSIS
     Route: 042
     Dates: start: 20070827, end: 20071119
  2. TYSABRI [Suspect]
     Route: 042
     Dates: start: 20090925

REACTIONS (17)
  - ABDOMINAL DISCOMFORT [None]
  - BLINDNESS [None]
  - BODY DYSMORPHIC DISORDER [None]
  - BODY FAT DISORDER [None]
  - DEPRESSION [None]
  - FATIGUE [None]
  - GAIT DISTURBANCE [None]
  - GASTROENTERITIS VIRAL [None]
  - HEPATIC ENZYME INCREASED [None]
  - ILL-DEFINED DISORDER [None]
  - LIVER INJURY [None]
  - MULTIPLE SCLEROSIS RELAPSE [None]
  - NAUSEA [None]
  - OEDEMA PERIPHERAL [None]
  - SPEECH DISORDER [None]
  - UNDERWEIGHT [None]
  - VOMITING [None]
